FAERS Safety Report 8428871-2 (Version None)
Quarter: 2012Q2

REPORT INFORMATION
  Report Type: 
  Country: None (occurrence: None)
  Receive Date: 20120612
  Receipt Date: 20120601
  Transmission Date: 20120825
  Serious: Yes (Other)
  Sender: FDA-Public Use
  Company Number: BR-SANOFI-AVENTIS-2011SA060712

PATIENT
  Age: 32 Year
  Sex: Female
  Weight: 70 kg

DRUGS (2)
  1. ENOXAPARIN SODIUM [Suspect]
     Indication: THROMBOSIS
     Route: 058
     Dates: start: 20110801, end: 20120301
  2. WARFARIN SODIUM [Suspect]
     Route: 065

REACTIONS (5)
  - MATERNAL EXPOSURE DURING PREGNANCY [None]
  - CONTUSION [None]
  - ABORTION [None]
  - INJECTION SITE HAEMORRHAGE [None]
  - THROMBOSIS [None]
